FAERS Safety Report 7433283-4 (Version None)
Quarter: 2011Q2

REPORT INFORMATION
  Report Type: 
  Country: None (occurrence: None)
  Receive Date: 20110422
  Receipt Date: 20110415
  Transmission Date: 20111010
  Serious: No
  Sender: FDA-Public Use
  Company Number: US-B.I. PHARMACEUTICALS,INC./RIDGEFIELD-2011-BP-11071BP

PATIENT
  Sex: Female

DRUGS (9)
  1. VITAMIN D [Concomitant]
     Route: 048
  2. CLARITIN [Concomitant]
     Indication: SEASONAL ALLERGY
     Route: 048
  3. NIASPAN [Concomitant]
     Dosage: 1000 MG
     Route: 048
  4. DIGOXIN [Concomitant]
     Indication: PALPITATIONS
     Dosage: 0.125 MG
     Route: 048
  5. DAILY VITAMIN [Concomitant]
     Route: 048
  6. PRADAXA [Suspect]
     Dosage: 300 MG
     Route: 048
     Dates: start: 20110415
  7. VIACTIVE [Concomitant]
     Route: 048
  8. ZOLOFT [Concomitant]
     Indication: DEPRESSION
     Route: 048
  9. PRADAXA [Suspect]
     Indication: ATRIAL FIBRILLATION
     Dosage: 300 MG
     Route: 048
     Dates: start: 20110413, end: 20110413

REACTIONS (3)
  - ERUCTATION [None]
  - DIZZINESS [None]
  - NAUSEA [None]
